FAERS Safety Report 5696708-0 (Version None)
Quarter: 2008Q2

REPORT INFORMATION
  Report Type: 
  Country: None (occurrence: None)
  Receive Date: 20080408
  Receipt Date: 20080326
  Transmission Date: 20081010
  Serious: Yes (Hospitalization)
  Sender: FDA-Public Use
  Company Number: CH-MERCK-0803CHE00016

PATIENT
  Age: 41 Year
  Sex: Female

DRUGS (10)
  1. SINGULAIR [Suspect]
     Route: 048
  2. BUPROPION HYDROCHLORIDE [Concomitant]
     Indication: DEPRESSION
     Route: 048
  3. CLONAZEPAM [Concomitant]
     Route: 048
  4. OXCARBAZEPINE [Concomitant]
     Route: 048
  5. QUETIAPINE FUMARATE [Concomitant]
     Indication: SLEEP DISORDER
     Route: 048
  6. PANTOPRAZOLE SODIUM [Concomitant]
     Route: 048
  7. PANTOPRAZOLE SODIUM [Concomitant]
     Route: 048
  8. VARENICLINE TARTRATE [Suspect]
     Indication: SMOKER
     Route: 048
  9. VARENICLINE TARTRATE [Suspect]
     Route: 048
  10. GUANFACINE HYDROCHLORIDE [Concomitant]
     Indication: ANGER
     Route: 065

REACTIONS (9)
  - AGITATION [None]
  - ANGER [None]
  - HYPOMANIA [None]
  - IRRITABILITY [None]
  - PARAESTHESIA [None]
  - SCREAMING [None]
  - SLEEP DISORDER [None]
  - SUICIDAL BEHAVIOUR [None]
  - TRICHOTILLOMANIA [None]
